FAERS Safety Report 23848725 (Version 1)
Quarter: 2024Q2

REPORT INFORMATION
  Report Type: Spontaneous
  Country: US (occurrence: US)
  Receive Date: 20240513
  Receipt Date: 20240513
  Transmission Date: 20240716
  Serious: No
  Sender: FDA-Public Use
  Company Number: US-PFIZER INC-202400105554

PATIENT
  Age: 64 Year
  Sex: Female

DRUGS (1)
  1. XELJANZ XR [Suspect]
     Active Substance: TOFACITINIB CITRATE
     Dosage: 11 MG, 1X/DAY
     Dates: start: 20160826, end: 201901

REACTIONS (4)
  - Urinary tract infection [Unknown]
  - Hypercholesterolaemia [Unknown]
  - Grip strength decreased [Unknown]
  - Finger deformity [Unknown]

NARRATIVE: CASE EVENT DATE: 20190101
